FAERS Safety Report 8568332-3 (Version None)
Quarter: 2012Q3

REPORT INFORMATION
  Report Type: 
  Country: None (occurrence: None)
  Receive Date: 20120803
  Receipt Date: 20120511
  Transmission Date: 20120928
  Serious: No
  Sender: FDA-Public Use
  Company Number: US-ABBOTT-12P-163-0934573-00

PATIENT
  Sex: Female
  Weight: 72.64 kg

DRUGS (6)
  1. STATIN [Concomitant]
     Indication: PRODUCT USED FOR UNKNOWN INDICATION
  2. ASPIRIN [Concomitant]
     Indication: PRODUCT USED FOR UNKNOWN INDICATION
  3. NIASPAN [Suspect]
  4. LEVOXYL [Concomitant]
     Indication: PRODUCT USED FOR UNKNOWN INDICATION
  5. NIASPAN [Suspect]
  6. NIASPAN [Suspect]
     Indication: HIGH DENSITY LIPOPROTEIN DECREASED
     Dosage: AT BEDTIME
     Dates: start: 20100501

REACTIONS (3)
  - SKIN BURNING SENSATION [None]
  - ERYTHEMA [None]
  - FLUSHING [None]
